FAERS Safety Report 8889563 (Version 1)
Quarter: 2012Q4

REPORT INFORMATION
  Report Type: 
  Country: JP (occurrence: JP)
  Receive Date: 20121107
  Receipt Date: 20121107
  Transmission Date: 20130627
  Serious: Yes (Death, Other)
  Sender: FDA-Public Use
  Company Number: PHHY2012JP101266

PATIENT
  Age: 54 Year
  Sex: Female

DRUGS (2)
  1. FLUDARABINE [Suspect]
     Indication: MULTIPLE MYELOMA
  2. MELPHALAN [Suspect]
     Indication: MULTIPLE MYELOMA

REACTIONS (4)
  - Acute graft versus host disease [Fatal]
  - Plasma cell myeloma [Fatal]
  - Opportunistic infection [Fatal]
  - Cystitis haemorrhagic [Unknown]
